FAERS Safety Report 9285486 (Version 2)
Quarter: 2013Q2

REPORT INFORMATION
  Report Type: Spontaneous
  Country: US (occurrence: US)
  Receive Date: 20130513
  Receipt Date: 20130523
  Transmission Date: 20140414
  Serious: No
  Sender: FDA-Public Use
  Company Number: US-PFIZER INC-2013146644

PATIENT
  Age: 56 Year
  Sex: Female
  Weight: 76.6 kg

DRUGS (1)
  1. CHANTIX [Suspect]
     Indication: SMOKING CESSATION THERAPY
     Dosage: 1 MG, UNK

REACTIONS (4)
  - Drug ineffective [Unknown]
  - Blood pressure increased [Recovering/Resolving]
  - Arterial disorder [Unknown]
  - Anxiety [Recovering/Resolving]
